FAERS Safety Report 13098749 (Version 2)
Quarter: 2017Q4

REPORT INFORMATION
  Report Type: Spontaneous
  Country: FR (occurrence: FR)
  Receive Date: 20170109
  Receipt Date: 20171220
  Transmission Date: 20180320
  Serious: Yes (Other)
  Sender: FDA-Public Use
  Company Number: FR-BRISTOL-MYERS SQUIBB COMPANY-BMS-2017-000506

PATIENT
  Age: 69 Year
  Sex: Male

DRUGS (2)
  1. JAKAVI [Suspect]
     Active Substance: RUXOLITINIB
     Indication: MYELOFIBROSIS
     Dosage: 20 MG, Q12H
     Route: 048
     Dates: start: 20150402
  2. HYDREA [Suspect]
     Active Substance: HYDROXYUREA
     Indication: POLYCYTHAEMIA VERA
     Dosage: UNK
     Route: 048
     Dates: start: 1992

REACTIONS (6)
  - Cancer surgery [Unknown]
  - Bowen^s disease [Not Recovered/Not Resolved]
  - Herpes zoster [Unknown]
  - Squamous cell carcinoma [Not Recovered/Not Resolved]
  - Hyperleukocytosis [Unknown]
  - Skin haemorrhage [Recovered/Resolved]

NARRATIVE: CASE EVENT DATE: 201610
